FAERS Safety Report 4346523-5 (Version None)
Quarter: 2004Q2

REPORT INFORMATION
  Report Type: 
  Country: None (occurrence: None)
  Receive Date: 20040426
  Receipt Date: 20031112
  Transmission Date: 20050107
  Serious: No
  Sender: FDA-Public Use
  Company Number: US-BRISTOL-MYERS SQUIBB COMPANY-12433728

PATIENT
  Age: 3 Year
  Sex: Male

DRUGS (2)
  1. CARBOPLATIN [Suspect]
     Indication: BRAIN NEOPLASM
     Route: 042
     Dates: start: 20031111, end: 20031111
  2. ONDANSETRON HCL [Concomitant]
     Indication: PREMEDICATION
     Dates: start: 20031111, end: 20031111

REACTIONS (1)
  - RASH [None]
